FAERS Safety Report 4550195-4 (Version None)
Quarter: 2005Q1

REPORT INFORMATION
  Report Type: 
  Country: None (occurrence: None)
  Receive Date: 20050112
  Receipt Date: 20050101
  Transmission Date: 20050727
  Serious: Yes (Hospitalization)
  Sender: FDA-Public Use
  Company Number: US-GLAXOSMITHKLINE-A0538926A

PATIENT
  Age: 58 Year
  Sex: Male
  Weight: 117.3 kg

DRUGS (5)
  1. COMMIT [Suspect]
     Indication: SMOKING CESSATION THERAPY
     Route: 002
     Dates: start: 20041101, end: 20041103
  2. MOBIC [Suspect]
     Indication: ARTHRITIS
     Route: 048
  3. LORTAB [Concomitant]
     Indication: BACK PAIN
     Route: 048
  4. WATER PILL [Concomitant]
     Indication: HYPERTENSION
     Route: 048
  5. UNKNOWN BLOOD PRESSURE PILL [Concomitant]
     Indication: HYPERTENSION
     Route: 048

REACTIONS (5)
  - ABDOMINAL PAIN [None]
  - BLOOD PRESSURE DECREASED [None]
  - DUODENAL ULCER [None]
  - MELAENA [None]
  - RED BLOOD CELL COUNT DECREASED [None]
